FAERS Safety Report 9676511 (Version 2)
Quarter: 2013Q4

REPORT INFORMATION
  Report Type: Report from Study
  Country: US (occurrence: US)
  Receive Date: 20131107
  Receipt Date: 20131107
  Transmission Date: 20140711
  Serious: Yes (Hospitalization, Other)
  Sender: FDA-Public Use
  Company Number: US-ABBVIE-07P-163-0422187-00

PATIENT
  Age: 20 Year
  Sex: Female
  Weight: 65.83 kg

DRUGS (6)
  1. HUMIRA 40 MG/ 0.8 ML PRE-FILLED SYRINGE [Suspect]
     Indication: CROHN^S DISEASE
     Route: 058
     Dates: start: 20071022, end: 20071111
  2. PRENATAL VITAMINS [Concomitant]
     Indication: PRODUCT USED FOR UNKNOWN INDICATION
     Dosage: ONE PILL, 1 IN 1D
     Route: 048
     Dates: start: 20070911, end: 20071111
  3. ASACOL [Concomitant]
     Indication: CROHN^S DISEASE
     Route: 048
     Dates: start: 20070805, end: 20071001
  4. TYLENOL EXTRA-STRENGTH [Concomitant]
     Indication: CROHN^S DISEASE
     Dosage: 2 PILLS, 2 IN 1 W
     Route: 048
     Dates: start: 20070805, end: 20071022
  5. TYLENOL EXTRA-STRENGTH [Concomitant]
     Indication: HEADACHE
  6. PENICILLIN NOS [Concomitant]
     Indication: NASOPHARYNGITIS
     Dosage: 3 PILL, 7 TOTAL
     Route: 048
     Dates: start: 20071001, end: 20071031

REACTIONS (3)
  - Abortion spontaneous [Unknown]
  - Post procedural infection [Unknown]
  - Injection site bruising [Recovering/Resolving]
